FAERS Safety Report 4375959-1 (Version None)
Quarter: 2004Q2

REPORT INFORMATION
  Report Type: 
  Country: None (occurrence: None)
  Receive Date: 20040609
  Receipt Date: 20040609
  Transmission Date: 20050107
  Serious: Yes (Hospitalization)
  Sender: FDA-Public Use
  Company Number: None

PATIENT
  Age: 32 Year
  Sex: Male
  Weight: 55.3388 kg

DRUGS (1)
  1. L-GLUTAMINE [Suspect]
     Indication: SICKLE CELL ANAEMIA
     Dosage: 10 GRAMS BID , ORALLY
     Route: 048
     Dates: start: 20040523

REACTIONS (2)
  - LOSS OF CONSCIOUSNESS [None]
  - SICKLE CELL ANAEMIA WITH CRISIS [None]
